FAERS Safety Report 13212376 (Version 1)
Quarter: 2017Q1

REPORT INFORMATION
  Report Type: Spontaneous
  Country: US (occurrence: US)
  Receive Date: 20170209
  Receipt Date: 20170209
  Transmission Date: 20170428
  Serious: No
  Sender: FDA-Public Use
  Company Number: US-ALLERGAN-1653587US

PATIENT
  Age: 73 Year
  Sex: Female
  Weight: 44.9 kg

DRUGS (6)
  1. BOTOX COSMETIC [Suspect]
     Active Substance: ONABOTULINUMTOXINA
     Indication: SKIN WRINKLING
     Dosage: UNK, SINGLE
     Route: 030
     Dates: start: 20160309, end: 20160309
  2. JUVEDERM VOLUMA XC [Concomitant]
     Active Substance: HYALURONIC ACID\LIDOCAINE HYDROCHLORIDE
     Indication: PRODUCT USED FOR UNKNOWN INDICATION
     Dosage: UNK
     Dates: start: 20160309, end: 20160309
  3. BOTOX COSMETIC [Suspect]
     Active Substance: ONABOTULINUMTOXINA
     Indication: SKIN WRINKLING
     Dosage: UNK, SINGLE
     Route: 030
  4. CALCIUM [Concomitant]
     Active Substance: CALCIUM
     Indication: SUPPLEMENTATION THERAPY
     Dosage: UNK, QD
     Route: 048
  5. VITAMIN D3 [Concomitant]
     Active Substance: CHOLECALCIFEROL
     Indication: SUPPLEMENTATION THERAPY
     Dosage: UNK UNK, QD
     Route: 048
  6. MAGNESIUM [Concomitant]
     Active Substance: MAGNESIUM
     Indication: SUPPLEMENTATION THERAPY
     Dosage: UNK UNK, QD
     Route: 048

REACTIONS (18)
  - Tonsillar hypertrophy [Recovering/Resolving]
  - Oropharyngeal pain [Unknown]
  - Swelling face [Recovering/Resolving]
  - Ear pain [Not Recovered/Not Resolved]
  - Nasal discomfort [Not Recovered/Not Resolved]
  - Nasal inflammation [Unknown]
  - Swollen tongue [Recovering/Resolving]
  - Stomatitis [Not Recovered/Not Resolved]
  - Hypersensitivity [Unknown]
  - Headache [Recovering/Resolving]
  - Dysphonia [Unknown]
  - Stomatitis [Not Recovered/Not Resolved]
  - Neck pain [Recovering/Resolving]
  - Hypertrophy of tongue papillae [Recovering/Resolving]
  - Blepharitis [Unknown]
  - Erythema of eyelid [Unknown]
  - Pain in jaw [Unknown]
  - Sensation of foreign body [Unknown]

NARRATIVE: CASE EVENT DATE: 201603
